FAERS Safety Report 12525875 (Version 2)
Quarter: 2016Q3

REPORT INFORMATION
  Report Type: Spontaneous
  Country: JP (occurrence: JP)
  Receive Date: 20160705
  Receipt Date: 20160709
  Transmission Date: 20161109
  Serious: Yes (Other)
  Sender: FDA-Public Use
  Company Number: JP-AMGEN-JPNSP2016086138

PATIENT
  Age: 58 Year
  Sex: Male

DRUGS (11)
  1. PARIET [Concomitant]
     Active Substance: RABEPRAZOLE SODIUM
     Dosage: UNK
     Route: 048
  2. SIGMART [Concomitant]
     Active Substance: NICORANDIL
     Dosage: UNK
     Route: 065
  3. PREDONINE [Concomitant]
     Active Substance: PREDNISOLONE\PREDNISOLONE ACETATE\PREDNISOLONE SODIUM SUCCINATE
     Dosage: 5 MG, UNK
     Route: 065
     Dates: start: 201207
  4. ZOVIRAX [Suspect]
     Active Substance: ACYCLOVIR
     Indication: CYTOMEGALOVIRUS CHORIORETINITIS
     Dosage: 175 G, UNK
     Route: 065
     Dates: start: 20160601, end: 20160601
  5. WARFARIN                           /00014803/ [Concomitant]
     Active Substance: WARFARIN
     Dosage: UNK
     Route: 048
  6. MICARDIS [Concomitant]
     Active Substance: TELMISARTAN
     Dosage: UNK
     Route: 048
  7. EPOETIN ALFA [Suspect]
     Active Substance: ERYTHROPOIETIN
     Indication: DIABETIC NEPHROPATHY
     Dosage: UNK
     Route: 058
     Dates: start: 200908, end: 201004
  8. NEORAL [Concomitant]
     Active Substance: CYCLOSPORINE
     Dosage: UNK
     Route: 048
     Dates: start: 2010, end: 201107
  9. DENOSINE [Suspect]
     Active Substance: GANCICLOVIR
     Indication: CYTOMEGALOVIRUS CHORIORETINITIS
     Dosage: 60 G, UNK
     Route: 041
     Dates: start: 20160602, end: 20160610
  10. NESP [Suspect]
     Active Substance: DARBEPOETIN ALFA
     Indication: NEPHROGENIC ANAEMIA
     Dosage: 20 MUG, SINGLE
     Route: 058
     Dates: start: 20160608, end: 20160608
  11. DENOSINE [Suspect]
     Active Substance: GANCICLOVIR
     Dosage: 30 G, UNK
     Route: 041
     Dates: start: 20160615

REACTIONS (1)
  - Aplasia pure red cell [Recovered/Resolved]

NARRATIVE: CASE EVENT DATE: 2010
